FAERS Safety Report 8586401 (Version 5)
Quarter: 2013Q1

REPORT INFORMATION
  Report Type: Spontaneous
  Country: AR (occurrence: AR)
  Receive Date: 20120530
  Receipt Date: 20130115
  Transmission Date: 20140127
  Serious: Yes (Other)
  Sender: FDA-Public Use
  Company Number: AR-ROCHE-1072986

PATIENT
  Age: 70 Year
  Sex: Female

DRUGS (6)
  1. XOLAIR [Suspect]
     Indication: ASTHMA
     Route: 065
     Dates: start: 20101015
  2. XOLAIR [Suspect]
     Indication: HYPERSENSITIVITY
     Route: 065
     Dates: end: 20120424
  3. XOLAIR [Suspect]
     Indication: BRONCHIECTASIS
     Route: 065
     Dates: start: 20120703
  4. XOLAIR [Suspect]
     Route: 065
     Dates: start: 20120717
  5. XOLAIR [Suspect]
     Route: 065
     Dates: start: 20121018
  6. XOLAIR [Suspect]
     Route: 065
     Dates: start: 20120524, end: 201208

REACTIONS (11)
  - Bronchitis [Recovered/Resolved]
  - Pyrexia [Recovering/Resolving]
  - Increased upper airway secretion [Recovered/Resolved]
  - Asthma [Recovering/Resolving]
  - Aphonia [Not Recovered/Not Resolved]
  - Localised infection [Not Recovered/Not Resolved]
  - Malaise [Unknown]
  - Respiratory rate increased [Unknown]
  - Cough [Unknown]
  - Pneumonia [Recovering/Resolving]
  - Asthenia [Recovering/Resolving]
